FAERS Safety Report 6802655-0 (Version None)
Quarter: 2010Q2

REPORT INFORMATION
  Report Type: 
  Country: None (occurrence: None)
  Receive Date: 20100628
  Receipt Date: 20100626
  Transmission Date: 20101027
  Serious: Yes (Hospitalization)
  Sender: FDA-Public Use
  Company Number: PHHO2009US04380

PATIENT
  Sex: Male

DRUGS (3)
  1. PLACEBO COMP-PLA+ [Suspect]
     Indication: NEUROENDOCRINE TUMOUR
     Dosage: PLACEBO
     Route: 048
     Dates: start: 20080110, end: 20080403
  2. RAD001C [Suspect]
     Indication: NEUROENDOCRINE TUMOUR
     Dosage: UNK
     Dates: start: 20080403, end: 20090402
  3. ACE INHIBITOR NOS [Concomitant]

REACTIONS (12)
  - ABDOMINAL PAIN [None]
  - BLOOD CREATININE INCREASED [None]
  - BLOOD UREA INCREASED [None]
  - CLOSTRIDIUM DIFFICILE COLITIS [None]
  - GENERALISED OEDEMA [None]
  - ILEUS [None]
  - INFREQUENT BOWEL MOVEMENTS [None]
  - INTESTINAL DILATATION [None]
  - PYREXIA [None]
  - RENAL CYST [None]
  - RENAL FAILURE ACUTE [None]
  - WHITE BLOOD CELL COUNT INCREASED [None]
